FAERS Safety Report 10039409 (Version 1)
Quarter: 2014Q1

REPORT INFORMATION
  Report Type: Spontaneous
  Country: US (occurrence: US)
  Receive Date: 20140326
  Receipt Date: 20140326
  Transmission Date: 20141002
  Serious: Yes (Other)
  Sender: FDA-Public Use
  Company Number: PHHY2014US036042

PATIENT
  Sex: Female

DRUGS (7)
  1. MYCOPHENOLATE [Suspect]
     Indication: MULTIPLE SCLEROSIS
  2. AZATHIOPRINE [Suspect]
     Indication: MULTIPLE SCLEROSIS
  3. GLATIRAMER ACETATE [Suspect]
     Indication: MULTIPLE SCLEROSIS
  4. INTERFERONS [Suspect]
     Indication: MULTIPLE SCLEROSIS
  5. ACTH [Suspect]
     Indication: MULTIPLE SCLEROSIS
  6. RITUXIMAB [Suspect]
  7. MITOXANTRONE [Concomitant]
     Indication: MULTIPLE SCLEROSIS

REACTIONS (2)
  - Neuromyelitis optica [Unknown]
  - Drug ineffective [Unknown]
